FAERS Safety Report 4984530-X (Version None)
Quarter: 2006Q2

REPORT INFORMATION
  Report Type: 
  Country: None (occurrence: None)
  Receive Date: 20060421
  Receipt Date: 20060407
  Transmission Date: 20061013
  Serious: Yes (Hospitalization)
  Sender: FDA-Public Use
  Company Number: S06-FRA-01379-01

PATIENT
  Age: 80 Year
  Sex: Female

DRUGS (6)
  1. CITALOPRAM HYDROBROMIDE [Suspect]
     Dosage: 20 MG QD PO
     Route: 048
     Dates: start: 20060201, end: 20060216
  2. HALDOL SOLUTAB [Concomitant]
  3. PREVISCAN (FLUINDIONE) [Concomitant]
  4. NEO-MERCAZOLE TAB [Concomitant]
  5. PROPRANOLOL [Concomitant]
  6. PARKINANE (TRIHEXYPHENIDYL HYDROCHLORIDE) [Concomitant]

REACTIONS (7)
  - AGITATION [None]
  - CONFUSIONAL STATE [None]
  - DELIRIUM [None]
  - DISORIENTATION [None]
  - FALL [None]
  - HALLUCINATION [None]
  - HYPONATRAEMIA [None]
